FAERS Safety Report 8997200 (Version 1)
Quarter: 2013Q1

REPORT INFORMATION
  Report Type: Spontaneous
  Country: US (occurrence: US)
  Receive Date: 20130104
  Receipt Date: 20130104
  Transmission Date: 20140127
  Serious: No
  Sender: FDA-Public Use
  Company Number: US-JNJFOC-20121201626

PATIENT
  Sex: Male

DRUGS (5)
  1. INVEGA [Suspect]
     Indication: PRODUCT USED FOR UNKNOWN INDICATION
     Dosage: 6 MG FOR 3 DAYS
     Route: 048
  2. INVEGA [Suspect]
     Indication: PRODUCT USED FOR UNKNOWN INDICATION
     Dosage: 3 MG FOR 1 WEEK
     Route: 048
  3. SEROQUEL [Concomitant]
     Route: 065
  4. GEODON [Concomitant]
     Route: 065
  5. ZYPREXA [Concomitant]
     Route: 065

REACTIONS (5)
  - Paranoia [Not Recovered/Not Resolved]
  - Depressed mood [Recovering/Resolving]
  - Insomnia [Recovering/Resolving]
  - Hallucination, auditory [Recovering/Resolving]
  - Hallucination, visual [Recovering/Resolving]
